FAERS Safety Report 21543391 (Version 1)
Quarter: 2022Q4

REPORT INFORMATION
  Report Type: Report from Study
  Country: CA (occurrence: CA)
  Receive Date: 20221102
  Receipt Date: 20221102
  Transmission Date: 20230113
  Serious: Yes (Death)
  Sender: FDA-Public Use
  Company Number: CA-ABBVIE-4185040

PATIENT
  Age: 77 Year
  Sex: Male

DRUGS (7)
  1. VENCLEXTA [Suspect]
     Active Substance: VENETOCLAX
     Indication: Blastic plasmacytoid dendritic cell neoplasia
     Route: 048
     Dates: start: 20210424, end: 20210424
  2. VENCLEXTA [Suspect]
     Active Substance: VENETOCLAX
     Indication: Blastic plasmacytoid dendritic cell neoplasia
     Route: 048
     Dates: start: 20210423, end: 20210423
  3. VENCLEXTA [Suspect]
     Active Substance: VENETOCLAX
     Indication: Blastic plasmacytoid dendritic cell neoplasia
     Route: 048
     Dates: start: 20210425
  4. LIPITOR [Concomitant]
     Active Substance: ATORVASTATIN CALCIUM
     Indication: Product used for unknown indication
  5. TYLENOL [Concomitant]
     Active Substance: ACETAMINOPHEN
     Indication: Product used for unknown indication
  6. AMOXICILLIN [Concomitant]
     Active Substance: AMOXICILLIN
     Indication: Product used for unknown indication
  7. RAMIPRIL [Concomitant]
     Active Substance: RAMIPRIL
     Indication: Product used for unknown indication

REACTIONS (1)
  - Death [Fatal]

NARRATIVE: CASE EVENT DATE: 20210604
